FAERS Safety Report 5274614-3 (Version None)
Quarter: 2007Q1

REPORT INFORMATION
  Report Type: 
  Country: None (occurrence: None)
  Receive Date: 20070320
  Receipt Date: 20070305
  Transmission Date: 20070707
  Serious: No
  Sender: FDA-Public Use
  Company Number: 2007S1001288

PATIENT
  Age: 69 Year
  Sex: Female
  Weight: 58.9676 kg

DRUGS (9)
  1. NITROFURANTOIN MONOHYDRATE/MACROCRYSTALS CAPSULES (100 MG ) [Suspect]
     Indication: URINARY TRACT INFECTION
     Dosage: 100 MG; TWICE A DAY; ORAL
     Route: 048
     Dates: start: 20070111, end: 20070114
  2. PREDNISONE [Suspect]
     Dosage: 40 MG; ORAL
     Route: 048
     Dates: start: 20070116
  3. FAMOTIDINE [Suspect]
     Dosage: 20 ,G; TWICE A DAY; ORAL
     Route: 048
     Dates: start: 20070116
  4. HYDROCHLOROTHIAZIDE [Concomitant]
  5. TEMAZEPAM [Concomitant]
  6. HYDROCODONE BITARTRATE AND ACETAMINOPHEN [Concomitant]
  7. ATENOLOL [Concomitant]
  8. DICYCLOMINE HCL [Concomitant]
  9. ACETYLSALICYLIC ACID SRT [Concomitant]

REACTIONS (13)
  - ANAPHYLACTIC REACTION [None]
  - BLOOD PRESSURE INCREASED [None]
  - DRY EYE [None]
  - ERYTHEMA [None]
  - EYE PAIN [None]
  - FATIGUE [None]
  - HEART RATE INCREASED [None]
  - OCULAR HYPERAEMIA [None]
  - PAIN [None]
  - PRURITUS [None]
  - RASH [None]
  - SECRETION DISCHARGE [None]
  - SWELLING FACE [None]
